FAERS Safety Report 9416979 (Version 2)
Quarter: 2013Q3

REPORT INFORMATION
  Report Type: Spontaneous
  Country: US (occurrence: US)
  Receive Date: 20130724
  Receipt Date: 20130726
  Transmission Date: 20140515
  Serious: Yes (Death)
  Sender: FDA-Public Use
  Company Number: US-ROCHE-1252294

PATIENT
  Sex: Male

DRUGS (2)
  1. PEGASYS [Suspect]
     Indication: CHRONIC HEPATITIS C
     Route: 065
     Dates: start: 1990
  2. INTERFERON ALFA-2A [Concomitant]
     Route: 065
     Dates: start: 1990

REACTIONS (3)
  - Death [Fatal]
  - Fatigue [Unknown]
  - Depression [Unknown]
